FAERS Safety Report 16085052 (Version 2)
Quarter: 2019Q3

REPORT INFORMATION
  Report Type: Spontaneous
  Country: US (occurrence: US)
  Receive Date: 20190318
  Receipt Date: 20190920
  Transmission Date: 20191004
  Serious: No
  Sender: FDA-Public Use
  Company Number: US-MYLANLABS-2019M1018014

PATIENT
  Sex: Female
  Weight: 65 kg

DRUGS (3)
  1. NADOLOL TABLETS, USP [Suspect]
     Active Substance: NADOLOL
     Indication: VESTIBULAR MIGRAINE
     Dosage: 20 MILLIGRAM
     Route: 048
     Dates: start: 2010
  2. NADOLOL TABLETS, USP [Suspect]
     Active Substance: NADOLOL
     Indication: MIGRAINE
     Dosage: 10 MILLIGRAM
     Route: 048
  3. VITAMIN C [Concomitant]
     Active Substance: ASCORBIC ACID
     Dosage: UNK

REACTIONS (3)
  - Off label use [Unknown]
  - Migraine [Not Recovered/Not Resolved]
  - Blood pressure decreased [Recovered/Resolved]
